FAERS Safety Report 17031333 (Version 3)
Quarter: 2020Q1

REPORT INFORMATION
  Report Type: Spontaneous
  Country: US (occurrence: US)
  Receive Date: 20191114
  Receipt Date: 20200218
  Transmission Date: 20200409
  Serious: No
  Sender: FDA-Public Use
  Company Number: US-PFIZER INC-2019490051

PATIENT
  Age: 74 Year
  Sex: Female

DRUGS (1)
  1. RETACRIT [Suspect]
     Active Substance: EPOETIN ALFA-EPBX
     Indication: BONE MARROW INFILTRATION
     Dosage: 40000 IU, UNK (40,000 (UNITS/1 ML))

REACTIONS (2)
  - Nasopharyngitis [Unknown]
  - Blood count abnormal [Unknown]
